FAERS Safety Report 20544130 (Version 4)
Quarter: 2022Q2

REPORT INFORMATION
  Report Type: Report from Study
  Country: US (occurrence: US)
  Receive Date: 20220303
  Receipt Date: 20220615
  Transmission Date: 20220720
  Serious: Yes (Other)
  Sender: FDA-Public Use
  Company Number: US-NOVARTISPH-NVSC2022US042459

PATIENT
  Age: 77 Year
  Sex: Male
  Weight: 119.7 kg

DRUGS (1)
  1. ENTRESTO [Suspect]
     Active Substance: SACUBITRIL\VALSARTAN
     Indication: Cardiac failure
     Dosage: 1 DOSAGE FORM, BID (50 MG)
     Route: 048

REACTIONS (8)
  - Pulmonary thrombosis [Unknown]
  - Atrial fibrillation [Unknown]
  - SARS-CoV-2 test positive [Recovered/Resolved]
  - Chest pain [Unknown]
  - Cough [Recovered/Resolved]
  - Gait disturbance [Unknown]
  - Fatigue [Unknown]
  - Dizziness [Unknown]

NARRATIVE: CASE EVENT DATE: 20220513
